FAERS Safety Report 8382773-9 (Version None)
Quarter: 2012Q2

REPORT INFORMATION
  Report Type: 
  Country: None (occurrence: None)
  Receive Date: 20120524
  Receipt Date: 20120511
  Transmission Date: 20120825
  Serious: Yes (Hospitalization, Other)
  Sender: FDA-Public Use
  Company Number: AU-MYLANLABS-2012S1009724

PATIENT
  Sex: Male

DRUGS (4)
  1. VYTORIN [Concomitant]
     Dosage: 10/80MG
     Route: 048
  2. ATACAND HCT [Concomitant]
     Dosage: 16/12.5MG
     Route: 048
  3. ENDEP [Concomitant]
  4. VENLAFAXINE [Suspect]
     Indication: PRODUCT USED FOR UNKNOWN INDICATION
     Route: 048

REACTIONS (2)
  - CONFUSIONAL STATE [None]
  - PRODUCT SUBSTITUTION ISSUE [None]
